FAERS Safety Report 6067886-9 (Version None)
Quarter: 2009Q1

REPORT INFORMATION
  Report Type: 
  Country: None (occurrence: None)
  Receive Date: 20090203
  Receipt Date: 20090126
  Transmission Date: 20090719
  Serious: Yes (Hospitalization)
  Sender: FDA-Public Use
  Company Number: 2009S1000021

PATIENT
  Age: 62 Year
  Sex: Male
  Weight: 50.34 kg

DRUGS (5)
  1. OLUX E [Suspect]
     Indication: ACRODERMATITIS
     Dosage: BID; TOP
     Route: 061
     Dates: start: 20081230, end: 20090113
  2. HYDROCHLOROTHIAZIDE [Concomitant]
  3. ESEOMEPRAZOLE [Concomitant]
  4. KEFLEX/00145501 [Concomitant]
  5. HYDROCODONE BITARTRATE [Concomitant]

REACTIONS (4)
  - ABSCESS LIMB [None]
  - BETA HAEMOLYTIC STREPTOCOCCAL INFECTION [None]
  - ENTEROCOCCAL INFECTION [None]
  - KLEBSIELLA INFECTION [None]
